FAERS Safety Report 5234465-2 (Version None)
Quarter: 2007Q1

REPORT INFORMATION
  Report Type: 
  Country: None (occurrence: None)
  Receive Date: 20070209
  Receipt Date: 20070124
  Transmission Date: 20070707
  Serious: Yes (Life-Threatening)
  Sender: FDA-Public Use
  Company Number: GR-GLAXOSMITHKLINE-B0457571A

PATIENT
  Age: 57 Year
  Sex: Male

DRUGS (1)
  1. AUGMENTIN '125' [Suspect]
     Route: 048
     Dates: start: 20070109, end: 20070109

REACTIONS (10)
  - ANAPHYLACTIC SHOCK [None]
  - ANGIOEDEMA [None]
  - ANURIA [None]
  - BRONCHOSPASM [None]
  - CHILLS [None]
  - DIARRHOEA [None]
  - DISCOMFORT [None]
  - DYSPNOEA [None]
  - NAUSEA [None]
  - PRESYNCOPE [None]
